FAERS Safety Report 24386121 (Version 1)
Quarter: 2024Q4

REPORT INFORMATION
  Report Type: Spontaneous
  Country: US (occurrence: US)
  Receive Date: 20241001
  Receipt Date: 20241001
  Transmission Date: 20250114
  Serious: Yes (Life-Threatening, Other)
  Sender: PURDUE
  Company Number: US-NAPPMUNDI-GBR-2024-0120074

PATIENT
  Age: 80 Year
  Sex: Female

DRUGS (1)
  1. MORPHINE SULFATE [Suspect]
     Active Substance: MORPHINE SULFATE
     Indication: Abdominal pain
     Dosage: UNK
     Route: 065

REACTIONS (7)
  - Respiratory failure [Unknown]
  - Post polio syndrome [Unknown]
  - Seizure [Unknown]
  - Unresponsive to stimuli [Unknown]
  - Hypertension [Unknown]
  - Dysphagia [Unknown]
  - Dysarthria [Unknown]
